FAERS Safety Report 20834546 (Version 3)
Quarter: 2022Q3

REPORT INFORMATION
  Report Type: Report from Study
  Country: CO (occurrence: CO)
  Receive Date: 20220516
  Receipt Date: 20220627
  Transmission Date: 20221027
  Serious: Yes (Hospitalization)
  Sender: FDA-Public Use
  Company Number: CO-NOVARTISPH-NVSC2021CO218262

PATIENT
  Age: 6 Year
  Sex: Male
  Weight: 35 kg

DRUGS (3)
  1. ELTROMBOPAG OLAMINE [Suspect]
     Active Substance: ELTROMBOPAG OLAMINE
     Indication: Immune thrombocytopenia
     Dosage: 25 MG, QD
     Route: 048
     Dates: start: 20210625, end: 20210826
  2. ELTROMBOPAG OLAMINE [Suspect]
     Active Substance: ELTROMBOPAG OLAMINE
     Dosage: 50 MG, QD
     Route: 048
     Dates: start: 20210625
  3. ELTROMBOPAG OLAMINE [Suspect]
     Active Substance: ELTROMBOPAG OLAMINE
     Dosage: 50 MG, QD (2 OF 25 MG)
     Route: 048
     Dates: start: 20210826, end: 202204

REACTIONS (11)
  - Platelet count decreased [Unknown]
  - Disease recurrence [Unknown]
  - Malaise [Unknown]
  - Cryptorchism [Unknown]
  - COVID-19 [Unknown]
  - Epistaxis [Unknown]
  - Incorrect dose administered [Unknown]
  - Product dose omission issue [Unknown]
  - Ear pain [Unknown]
  - Pyrexia [Unknown]
  - Vomiting [Unknown]

NARRATIVE: CASE EVENT DATE: 20210701
